FAERS Safety Report 6529506-6 (Version None)
Quarter: 2010Q1

REPORT INFORMATION
  Report Type: 
  Country: None (occurrence: None)
  Receive Date: 20100104
  Receipt Date: 20091217
  Transmission Date: 20100710
  Serious: Yes (Other)
  Sender: FDA-Public Use
  Company Number: JPI-P-009454

PATIENT
  Age: 43 Year
  Sex: Male

DRUGS (6)
  1. LUVOX [Suspect]
     Indication: DEPRESSION
     Dosage: 50 MG (50 MG,1 IN 1 D),ORAL ; 25 MG (25 MG,1 IN 1 D),ORAL
     Route: 048
     Dates: start: 20091107, end: 20091125
  2. LUVOX [Suspect]
     Indication: DEPRESSION
     Dosage: 50 MG (50 MG,1 IN 1 D),ORAL ; 25 MG (25 MG,1 IN 1 D),ORAL
     Route: 048
     Dates: start: 20091126, end: 20091201
  3. SULPIRIDE [Concomitant]
  4. DIAZEPAM [Concomitant]
  5. ETIZOLAM [Concomitant]
  6. VALPROATE SODIUM [Concomitant]

REACTIONS (2)
  - AGGRESSION [None]
  - HOMICIDAL IDEATION [None]
